FAERS Safety Report 11838699 (Version 1)
Quarter: 2015Q4

REPORT INFORMATION
  Report Type: Spontaneous
  Country: US (occurrence: US)
  Receive Date: 20151215
  Receipt Date: 20151215
  Transmission Date: 20160305
  Serious: No
  Sender: FDA-Public Use
  Company Number: US-SA-2015SA183212

PATIENT
  Age: 38 Year
  Sex: Female

DRUGS (14)
  1. GEMCITABINE [Suspect]
     Active Substance: GEMCITABINE\GEMCITABINE HYDROCHLORIDE
     Indication: HEPATIC CANCER
     Route: 065
     Dates: start: 201402, end: 201402
  2. TAXOTERE [Suspect]
     Active Substance: DOCETAXEL
     Indication: HEPATIC CANCER
     Route: 065
     Dates: start: 201403, end: 201403
  3. TAXOTERE [Suspect]
     Active Substance: DOCETAXEL
     Indication: HEPATIC CANCER
     Route: 065
     Dates: start: 20150707, end: 20150707
  4. PAZOPANIB [Concomitant]
     Active Substance: PAZOPANIB
     Dates: start: 201404
  5. TAXOTERE [Suspect]
     Active Substance: DOCETAXEL
     Indication: HEPATIC CANCER
     Route: 065
     Dates: start: 20150616, end: 20150616
  6. GEMCITABINE [Suspect]
     Active Substance: GEMCITABINE\GEMCITABINE HYDROCHLORIDE
     Indication: HEPATIC CANCER
     Route: 065
     Dates: start: 201403, end: 201403
  7. TAXOTERE [Suspect]
     Active Substance: DOCETAXEL
     Indication: HEPATIC CANCER
     Dosage: FREEQUENCY 4 CYCLES OF DOCETAXEL.
     Route: 065
     Dates: start: 201401, end: 201401
  8. TAXOTERE [Suspect]
     Active Substance: DOCETAXEL
     Indication: HEPATIC CANCER
     Route: 065
     Dates: start: 201402, end: 201402
  9. TAXOTERE [Suspect]
     Active Substance: DOCETAXEL
     Indication: HEPATIC CANCER
     Route: 065
     Dates: start: 20150303, end: 20150303
  10. GEMCITABINE [Suspect]
     Active Substance: GEMCITABINE\GEMCITABINE HYDROCHLORIDE
     Indication: HEPATIC CANCER
     Route: 065
     Dates: start: 201401, end: 201401
  11. GEMCITABINE [Suspect]
     Active Substance: GEMCITABINE\GEMCITABINE HYDROCHLORIDE
     Indication: HEPATIC CANCER
     Route: 065
     Dates: start: 20150310, end: 20150310
  12. TAXOTERE [Suspect]
     Active Substance: DOCETAXEL
     Indication: HEPATIC CANCER
     Route: 065
     Dates: start: 201404, end: 201404
  13. GEMCITABINE [Suspect]
     Active Substance: GEMCITABINE\GEMCITABINE HYDROCHLORIDE
     Indication: HEPATIC CANCER
     Route: 065
     Dates: start: 20150616, end: 20150616
  14. GEMCITABINE [Suspect]
     Active Substance: GEMCITABINE\GEMCITABINE HYDROCHLORIDE
     Indication: HEPATIC CANCER
     Route: 065
     Dates: start: 20150707, end: 20150707

REACTIONS (1)
  - Depression [Recovering/Resolving]
